FAERS Safety Report 11893277 (Version 1)
Quarter: 2016Q1

REPORT INFORMATION
  Report Type: Spontaneous
  Country: IN (occurrence: IN)
  Receive Date: 20160106
  Receipt Date: 20160106
  Transmission Date: 20160526
  Serious: Yes (Death, Hospitalization)
  Sender: FDA-Public Use
  Company Number: IN-MYLANLABS-2016M1000000

PATIENT

DRUGS (2)
  1. PREDNISOLONE. [Suspect]
     Active Substance: PREDNISOLONE
     Indication: LEPROMATOUS LEPROSY
     Dosage: 50 MG/DAY
     Route: 065
  2. THALIDOMIDE [Concomitant]
     Active Substance: THALIDOMIDE
     Indication: LEPROMATOUS LEPROSY
     Route: 065

REACTIONS (9)
  - Sepsis [Fatal]
  - Hyponatraemia [Fatal]
  - Strongyloidiasis [Fatal]
  - Amoebic dysentery [Fatal]
  - Adrenal haemorrhage [Fatal]
  - Multiple organ dysfunction syndrome [Fatal]
  - Inappropriate antidiuretic hormone secretion [Fatal]
  - Weight decreased [Fatal]
  - Adrenal insufficiency [Fatal]
